FAERS Safety Report 6927530-2 (Version None)
Quarter: 2010Q3

REPORT INFORMATION
  Report Type: 
  Country: None (occurrence: None)
  Receive Date: 20100817
  Receipt Date: 20100805
  Transmission Date: 20110219
  Serious: Yes (Other)
  Sender: FDA-Public Use
  Company Number: US-WYE-H16777510

PATIENT
  Sex: Female
  Weight: 70.37 kg

DRUGS (1)
  1. PRISTIQ [Suspect]
     Indication: DEPRESSION
     Route: 048
     Dates: start: 20100421

REACTIONS (9)
  - CHOKING SENSATION [None]
  - DRUG INEFFECTIVE [None]
  - DRY THROAT [None]
  - DYSPNOEA [None]
  - ERUCTATION [None]
  - LACRIMATION INCREASED [None]
  - MUSCLE SPASMS [None]
  - NASAL CONGESTION [None]
  - THROAT TIGHTNESS [None]
